FAERS Safety Report 17996787 (Version 4)
Quarter: 2020Q3

REPORT INFORMATION
  Report Type: Spontaneous
  Country: NL (occurrence: NL)
  Receive Date: 20200708
  Receipt Date: 20200818
  Transmission Date: 20201103
  Serious: Yes (Life-Threatening, Hospitalization, Other)
  Sender: FDA-Public Use
  Company Number: NL-MYLANLABS-2020M1061840

PATIENT
  Age: 22 Year
  Sex: Male

DRUGS (3)
  1. AMITRIPTYLINE [Suspect]
     Active Substance: AMITRIPTYLINE
     Indication: CLUSTER HEADACHE
     Dosage: UNK
     Route: 048
  2. DIAZEPAM. [Concomitant]
     Active Substance: DIAZEPAM
     Indication: PRODUCT USED FOR UNKNOWN INDICATION
     Dosage: UNK
     Route: 065
  3. SUMATRIPTAN. [Concomitant]
     Active Substance: SUMATRIPTAN
     Indication: CLUSTER HEADACHE
     Dosage: UNK
     Route: 045

REACTIONS (21)
  - Pupillary disorder [Recovering/Resolving]
  - Sedation [Recovered/Resolved]
  - Intracranial pressure increased [Unknown]
  - Horner^s syndrome [Unknown]
  - Miosis [Unknown]
  - Akathisia [Recovered/Resolved]
  - Drug dependence [Unknown]
  - Psychomotor hyperactivity [Recovered/Resolved]
  - Off label use [Unknown]
  - Altered state of consciousness [Recovering/Resolving]
  - Poisoning [Unknown]
  - Nerve injury [Unknown]
  - Toxicity to various agents [Unknown]
  - Agitation [Recovering/Resolving]
  - Tachycardia [Unknown]
  - Pupils unequal [Not Recovered/Not Resolved]
  - Unresponsive to stimuli [Recovered/Resolved]
  - Mydriasis [Unknown]
  - Product use in unapproved indication [Unknown]
  - Hypertension [Unknown]
  - Aneurysm [Unknown]
